FAERS Safety Report 4304330-3 (Version None)
Quarter: 2004Q1

REPORT INFORMATION
  Report Type: 
  Country: None (occurrence: None)
  Receive Date: 20040224
  Receipt Date: 20040211
  Transmission Date: 20041129
  Serious: Yes (Other)
  Sender: FDA-Public Use
  Company Number: 2004009215

PATIENT
  Age: 22 Year
  Sex: Female
  Weight: 64 kg

DRUGS (7)
  1. SERTRALINE HCL [Suspect]
     Indication: DEPRESSION
     Dosage: 200 MG DAILY, ORAL
     Route: 048
     Dates: start: 20030401
  2. PEGINTERFERON ALFA-2B (PEGINTERFERON ALFA-2B) [Suspect]
     Indication: HEPATITIS C
     Dosage: SUBCUTANEOUS
     Route: 058
     Dates: start: 20031128
  3. MIRTAZAPINE [Suspect]
     Indication: DEPRESSION
     Dates: start: 20040117, end: 20040203
  4. RIBAVIRIN [Suspect]
     Indication: HEPATITIS C
     Dosage: 100 MG DAILY, ORAL
     Route: 048
     Dates: start: 20031128
  5. FENOTEROL HYDROBROMIDE (FENOTEROL HYDROBROMIDE) [Concomitant]
  6. SYMBICORT TURBUHALER   DRACO   (FORMOTEROL FUMARATE, BUDESONIDE) [Concomitant]
  7. FLUTICASONE PROPIONATE [Concomitant]

REACTIONS (3)
  - CONVULSION [None]
  - DEPRESSION [None]
  - DRUG INTERACTION [None]
